FAERS Safety Report 23695965 (Version 1)
Quarter: 2024Q2

REPORT INFORMATION
  Report Type: Report from Study
  Country: US (occurrence: US)
  Receive Date: 20240402
  Receipt Date: 20240402
  Transmission Date: 20240716
  Serious: Yes (Other)
  Sender: FDA-Public Use
  Company Number: US-CHIESI-2024CHF01687

PATIENT
  Age: 83 Year
  Sex: Female
  Weight: 86.9 kg

DRUGS (4)
  1. KENGREAL [Suspect]
     Active Substance: CANGRELOR
     Indication: Product used for unknown indication
     Dosage: UNK
     Route: 042
     Dates: start: 20230403, end: 20230406
  2. OXYCODONE [Concomitant]
     Active Substance: OXYCODONE\OXYCODONE HYDROCHLORIDE
     Indication: Product used for unknown indication
     Dosage: UNK
  3. BIVALIRUDIN [Concomitant]
     Active Substance: BIVALIRUDIN
     Indication: Anticoagulant therapy
     Dosage: UNK
     Dates: start: 20230403, end: 20230403
  4. FENTANYL [Concomitant]
     Active Substance: FENTANYL\FENTANYL CITRATE
     Indication: Product used for unknown indication
     Dosage: UNK
     Dates: start: 20230403

REACTIONS (4)
  - Vascular pseudoaneurysm [Unknown]
  - Off label use [Recovered/Resolved]
  - Off label use [Recovered/Resolved]
  - Off label use [Recovered/Resolved]

NARRATIVE: CASE EVENT DATE: 20230403
